FAERS Safety Report 8613382-1 (Version None)
Quarter: 2012Q3

REPORT INFORMATION
  Report Type: 
  Country: None (occurrence: None)
  Receive Date: 20120822
  Receipt Date: 20120723
  Transmission Date: 20120928
  Serious: Yes (Hospitalization, Disabling)
  Sender: FDA-Public Use
  Company Number: US-009507513-1207USA011173

PATIENT

DRUGS (3)
  1. PENTAERYTHRITOL TETRANITRATE [Concomitant]
  2. ZOCOR [Suspect]
     Dosage: 20 MG, QD
     Route: 048
  3. METOPROLOL TARTRATE [Concomitant]

REACTIONS (3)
  - AUTOIMMUNE HEPATITIS [None]
  - HEPATIC CIRRHOSIS [None]
  - CHOLANGITIS SCLEROSING [None]
